FAERS Safety Report 7841365-8 (Version None)
Quarter: 2011Q4

REPORT INFORMATION
  Report Type: 
  Country: None (occurrence: None)
  Receive Date: 20111020
  Receipt Date: 20111011
  Transmission Date: 20120403
  Serious: Yes (Hospitalization, Other)
  Sender: FDA-Public Use
  Company Number: 2011001458

PATIENT
  Age: 70 Year
  Sex: Male
  Weight: 79 kg

DRUGS (2)
  1. TARCEVA [Suspect]
     Indication: LUNG NEOPLASM MALIGNANT
     Dosage: 150 MG, UID/QD, ORAL ; 100 MG, UID/QD, ORAL
     Route: 048
     Dates: start: 20110501
  2. TARCEVA [Suspect]
     Indication: LUNG NEOPLASM MALIGNANT
     Dosage: 150 MG, UID/QD, ORAL ; 100 MG, UID/QD, ORAL
     Route: 048
     Dates: start: 20110308, end: 20110501

REACTIONS (10)
  - DIARRHOEA [None]
  - PNEUMONITIS [None]
  - ATRIAL FIBRILLATION [None]
  - DIASTOLIC DYSFUNCTION [None]
  - OPPORTUNISTIC INFECTION [None]
  - PNEUMONIA [None]
  - RIGHT VENTRICULAR FAILURE [None]
  - PULMONARY FUNCTION TEST ABNORMAL [None]
  - DYSPNOEA [None]
  - RASH [None]
